FAERS Safety Report 20828379 (Version 1)
Quarter: 2022Q2

REPORT INFORMATION
  Report Type: Spontaneous
  Country: US (occurrence: US)
  Receive Date: 20220513
  Receipt Date: 20220513
  Transmission Date: 20220720
  Serious: No
  Sender: FDA-Public Use
  Company Number: US-SA-SAC20220505001746

PATIENT
  Sex: Male

DRUGS (2)
  1. DUPIXENT [Suspect]
     Active Substance: DUPILUMAB
     Indication: Asthma
     Dosage: 300MG QOW
     Route: 058
  2. DUPIXENT [Suspect]
     Active Substance: DUPILUMAB
     Indication: Nasal polyps

REACTIONS (7)
  - COVID-19 [Unknown]
  - Pyrexia [Unknown]
  - Pain [Unknown]
  - Nasopharyngitis [Unknown]
  - Dyspnoea [Unknown]
  - Product use issue [Unknown]
  - Product use in unapproved indication [Unknown]
